FAERS Safety Report 19383589 (Version 5)
Quarter: 2022Q1

REPORT INFORMATION
  Report Type: Other
  Country: CA (occurrence: CA)
  Receive Date: 20210608
  Receipt Date: 20220331
  Transmission Date: 20220423
  Serious: Yes (Death, Hospitalization)
  Sender: FDA-Public Use
  Company Number: CA-CELLTRION INC.-2021CA007419

PATIENT

DRUGS (1)
  1. RITUXIMAB [Suspect]
     Active Substance: RITUXIMAB
     Indication: Chronic inflammatory demyelinating polyradiculoneuropathy
     Dosage: 1000 MG
     Route: 042

REACTIONS (5)
  - Death [Fatal]
  - SARS-CoV-2 test positive [Fatal]
  - Product use in unapproved indication [Fatal]
  - Off label use [Fatal]
  - Off label use [Unknown]
